FAERS Safety Report 16705369 (Version 3)
Quarter: 2024Q1

REPORT INFORMATION
  Report Type: Spontaneous
  Country: US (occurrence: US)
  Receive Date: 20190815
  Receipt Date: 20240304
  Transmission Date: 20240409
  Serious: No
  Sender: FDA-Public Use
  Company Number: US-COHERUS BIOSCIENCES, INC-2019US005830

PATIENT

DRUGS (1)
  1. UDENYCA [Suspect]
     Active Substance: PEGFILGRASTIM-CBQV
     Indication: Infection prophylaxis
     Dosage: UNK
     Route: 058
     Dates: start: 20190606, end: 20190606

REACTIONS (3)
  - Wrong product administered [Unknown]
  - Bone pain [Unknown]
  - Product label confusion [Unknown]

NARRATIVE: CASE EVENT DATE: 20190101
